FAERS Safety Report 20135559 (Version 2)
Quarter: 2021Q4

REPORT INFORMATION
  Report Type: Report from Study
  Country: BE (occurrence: BE)
  Receive Date: 20211201
  Receipt Date: 20211223
  Transmission Date: 20220303
  Serious: Yes (Death)
  Sender: FDA-Public Use
  Company Number: BE-ABBVIE-21K-013-4181163-00

PATIENT
  Age: 74 Year
  Sex: Male
  Weight: 84 kg

DRUGS (10)
  1. UPADACITINIB [Suspect]
     Active Substance: UPADACITINIB
     Indication: Rheumatoid arthritis
     Route: 048
     Dates: start: 202102, end: 202111
  2. PANTOMED [Concomitant]
     Indication: Gastrooesophageal reflux disease
     Route: 048
     Dates: start: 202103
  3. AMLODIPINE [Concomitant]
     Active Substance: AMLODIPINE BESYLATE
     Indication: Hypertension
     Route: 048
     Dates: start: 200105
  4. TAMSULOSIN HYDROCHLORIDE [Concomitant]
     Active Substance: TAMSULOSIN HYDROCHLORIDE
     Indication: Micturition disorder
     Route: 048
     Dates: start: 20101101
  5. GLICLAZIDE [Concomitant]
     Active Substance: GLICLAZIDE
     Indication: Diabetes mellitus
     Route: 048
     Dates: start: 201502
  6. SIMVASTATIN [Concomitant]
     Active Substance: SIMVASTATIN
     Indication: Hyperlipidaemia
     Route: 048
     Dates: start: 201006
  7. HYDROCHLOROTHIAZIDE\VALSARTAN [Concomitant]
     Active Substance: HYDROCHLOROTHIAZIDE\VALSARTAN
     Indication: Hypertension
     Dosage: 160/25 MG
     Route: 048
     Dates: start: 201102
  8. SARS-COV-2 VACCINE [Concomitant]
     Indication: Prophylaxis
     Dates: start: 20210413, end: 20210413
  9. SARS-COV-2 VACCINE [Concomitant]
     Dates: start: 20210705, end: 20210705
  10. SARS-COV-2 VACCINE [Concomitant]
     Dates: start: 20211007, end: 20211007

REACTIONS (8)
  - Pneumonia viral [Fatal]
  - Multiple organ dysfunction syndrome [Fatal]
  - COVID-19 [Fatal]
  - Pyrexia [Fatal]
  - Cough [Fatal]
  - Dyspnoea [Fatal]
  - Acute respiratory failure [Fatal]
  - Septic shock [Fatal]

NARRATIVE: CASE EVENT DATE: 20211101
